FAERS Safety Report 11135735 (Version 1)
Quarter: 2015Q2

REPORT INFORMATION
  Report Type: Spontaneous
  Country: US (occurrence: US)
  Receive Date: 20150526
  Receipt Date: 20150526
  Transmission Date: 20150821
  Serious: No
  Sender: FDA-Public Use
  Company Number: US-MALLINCKRODT-T201501969

PATIENT
  Sex: Female

DRUGS (1)
  1. H.P. ACTHAR [Suspect]
     Active Substance: CORTICOTROPIN
     Indication: RHEUMATOID ARTHRITIS
     Dosage: 80 UNITS, TWICE PER WEEK
     Route: 030
     Dates: start: 20150309

REACTIONS (4)
  - Weight increased [Unknown]
  - Dry mouth [Unknown]
  - Swelling [Unknown]
  - Thirst [Unknown]
